FAERS Safety Report 6313234-6 (Version None)
Quarter: 2009Q3

REPORT INFORMATION
  Report Type: 
  Country: None (occurrence: None)
  Receive Date: 20090818
  Receipt Date: 20090806
  Transmission Date: 20100115
  Serious: Yes (Death, Life-Threatening, Hospitalization)
  Sender: FDA-Public Use
  Company Number: FR-PFIZER INC-2009236821

PATIENT
  Age: 63 Year

DRUGS (9)
  1. SUTENT [Suspect]
     Indication: METASTASIS
     Dosage: 50 MG, 1X/DAY, CYCLE 1
     Dates: start: 20090429, end: 20090527
  2. SUTENT [Suspect]
     Dosage: UNK, CYCLE 2
     Dates: start: 20090611
  3. MEDROL [Suspect]
     Indication: METASTASES TO CENTRAL NERVOUS SYSTEM
     Dosage: 100 MG/ MORNING, 1/4 DF AT NOON
     Route: 048
     Dates: start: 20090410, end: 20090410
  4. MEDROL [Suspect]
     Dosage: 50 MG/ MORNING, 32 MG AT NOON
     Route: 048
     Dates: start: 20090611, end: 20090625
  5. MEDROL [Suspect]
     Dosage: 50 MG/ MORNING, 16 MG AT NOON
     Route: 048
     Dates: start: 20090626, end: 20090705
  6. DEPAKENE [Concomitant]
     Indication: METASTASIS
     Dosage: 1 DF, 2X/DAY
     Route: 048
     Dates: start: 20090410
  7. GAVISCON [Concomitant]
     Indication: GASTROOESOPHAGEAL REFLUX PROPHYLAXIS
     Dosage: 1 DF, AS NEEDED
     Route: 048
     Dates: start: 20080701
  8. OMEPRAZOLE [Concomitant]
     Indication: GASTROOESOPHAGEAL REFLUX PROPHYLAXIS
     Dosage: 1 DF, 1X/DAY
     Route: 048
     Dates: start: 20080701
  9. EFFERALGAN [Concomitant]
     Indication: OROPHARYNGEAL PAIN
     Dosage: UNK
     Route: 048
     Dates: start: 20090515

REACTIONS (3)
  - GASTRIC PERFORATION [None]
  - PERITONITIS [None]
  - SEPTIC SHOCK [None]
